FAERS Safety Report 8200913-9 (Version None)
Quarter: 2012Q1

REPORT INFORMATION
  Report Type: 
  Country: None (occurrence: None)
  Receive Date: 20120312
  Receipt Date: 20110802
  Transmission Date: 20120608
  Serious: No
  Sender: FDA-Public Use
  Company Number: US-ABBOTT-11P-163-0843515-00

PATIENT
  Sex: Female
  Weight: 45.4 kg

DRUGS (2)
  1. LUPRON DEPOT [Suspect]
     Indication: UTERINE LEIOMYOMA
     Dates: start: 20110701
  2. VIVELLE-DOT [Concomitant]
     Indication: HORMONE REPLACEMENT THERAPY
     Dates: start: 20110701

REACTIONS (3)
  - MENSTRUAL DISORDER [None]
  - BREAST TENDERNESS [None]
  - BACK PAIN [None]
